FAERS Safety Report 16265294 (Version 1)
Quarter: 2019Q2

REPORT INFORMATION
  Report Type: Spontaneous
  Country: US (occurrence: US)
  Receive Date: 20190501
  Receipt Date: 20190501
  Transmission Date: 20190711
  Serious: Yes (Other)
  Sender: FDA-Public Use
  Company Number: None

PATIENT
  Age: 25 Year
  Sex: Female
  Weight: 64.8 kg

DRUGS (1)
  1. NEXPLANON [Suspect]
     Active Substance: ETONOGESTREL
     Indication: CONTRACEPTION

REACTIONS (7)
  - Complication associated with device [None]
  - Libido decreased [None]
  - Mood swings [None]
  - Depression [None]
  - Menometrorrhagia [None]
  - Acne [None]
  - Suicidal ideation [None]

NARRATIVE: CASE EVENT DATE: 20190410
